FAERS Safety Report 7528701-7 (Version None)
Quarter: 2011Q2

REPORT INFORMATION
  Report Type: 
  Country: None (occurrence: None)
  Receive Date: 20110607
  Receipt Date: 20110603
  Transmission Date: 20111010
  Serious: Yes (Disabling)
  Sender: FDA-Public Use
  Company Number: JP-PFIZER INC-2011117610

PATIENT
  Age: 83 Year
  Sex: Female

DRUGS (1)
  1. ATARAX [Suspect]
     Dosage: UNK
     Dates: start: 20110411, end: 20110411

REACTIONS (1)
  - MUSCULAR WEAKNESS [None]
